FAERS Safety Report 17050604 (Version 1)
Quarter: 2019Q4

REPORT INFORMATION
  Report Type: Not Available
  Country: BR (occurrence: BR)
  Receive Date: 20191119
  Receipt Date: 20191119
  Transmission Date: 20200122
  Serious: Yes (Congenital Anomaly)
  Sender: FDA-Public Use
  Company Number: BR-CELLTRION-2019-BR-000059

PATIENT
  Age: 46 Year
  Sex: Female

DRUGS (3)
  1. ATAZANAVIR. [Suspect]
     Active Substance: ATAZANAVIR
     Dosage: 300 MG/DAY
     Route: 048
     Dates: start: 20120828
  2. LAMIVUDINE-TENOFOVIR DISOPROXIL FUMARATE [Suspect]
     Active Substance: LAMIVUDINE\TENOFOVIR DISOPROXIL FUMARATE
     Indication: HIV INFECTION
     Dosage: 600 MG/DAY
     Route: 048
     Dates: start: 20120828
  3. RITONAVIR. [Suspect]
     Active Substance: RITONAVIR
     Dosage: 100 MG/DAY
     Route: 048
     Dates: start: 20120828

REACTIONS (2)
  - Polyhydramnios [Unknown]
  - Foetal malformation [Not Recovered/Not Resolved]
